FAERS Safety Report 19601852 (Version 20)
Quarter: 2023Q4

REPORT INFORMATION
  Report Type: Spontaneous
  Country: GB (occurrence: GB)
  Receive Date: 20210723
  Receipt Date: 20231229
  Transmission Date: 20240110
  Serious: Yes (Hospitalization, Other)
  Sender: FDA-Public Use
  Company Number: GB-ACCORD-163327

PATIENT
  Age: 7 Year
  Sex: Male

DRUGS (18)
  1. DAPTOMYCIN [Suspect]
     Active Substance: DAPTOMYCIN
     Indication: Device related infection
     Route: 042
  2. DUTASTERIDE [Suspect]
     Active Substance: DUTASTERIDE
     Indication: Product used for unknown indication
     Dosage: 500 G, QD
     Route: 065
  3. BISOPROLOL [Suspect]
     Active Substance: BISOPROLOL\BISOPROLOL FUMARATE
     Indication: Product used for unknown indication
     Dosage: STRENGTH: 2.5 MG, ONCE A DAY, 2.5 MG, QD
     Route: 065
  4. TRAMADOL HYDROCHLORIDE [Suspect]
     Active Substance: TRAMADOL HYDROCHLORIDE
     Indication: Product used for unknown indication
     Dosage: STRENGTH: 50 MG
  5. LANSOPRAZOLE [Suspect]
     Active Substance: LANSOPRAZOLE
     Indication: Gastrooesophageal reflux disease
     Dosage: STRENGTH: 2.5 MG, 15 MILLIGRAM, ONCE A DAY
  6. ALFUZOSIN [Suspect]
     Active Substance: ALFUZOSIN
     Indication: Product used for unknown indication
     Dosage: STRENGTH: 10 MG
  7. VANCOMYCIN [Suspect]
     Active Substance: VANCOMYCIN
     Indication: Bacteraemia
     Route: 042
  8. LINEZOLID [Concomitant]
     Active Substance: LINEZOLID
  9. ALFUZOSIN [Suspect]
     Active Substance: ALFUZOSIN
     Indication: Product used for unknown indication
     Dosage: 1 DF, QD
  10. DAPTOMYCIN [Suspect]
     Active Substance: DAPTOMYCIN
     Indication: Bacteraemia
     Route: 042
  11. DAPTOMYCIN [Suspect]
     Active Substance: DAPTOMYCIN
     Indication: Device related infection
     Dosage: 120 DOSAGE FORM
     Route: 042
  12. LANSOPRAZOLE [Suspect]
     Active Substance: LANSOPRAZOLE
     Indication: Product used for unknown indication
     Dosage: STRENGTH: 2.5 MG
  13. DUTASTERIDE [Suspect]
     Active Substance: DUTASTERIDE
     Indication: Product used for unknown indication
     Dosage: 500 UG, QD
  14. DUTASTERIDE [Suspect]
     Active Substance: DUTASTERIDE
     Indication: Product used for unknown indication
     Dosage: 500 MG, QD
  15. ALFUZOSIN [Suspect]
     Active Substance: ALFUZOSIN
     Indication: Product used for unknown indication
     Dosage: STRENGTH: 10 MG, ONCE A DAY
  16. DUTASTERIDE [Suspect]
     Active Substance: DUTASTERIDE
     Indication: Product used for unknown indication
     Dosage: 500 G, QD
  17. TRAMADOL HYDROCHLORIDE [Suspect]
     Active Substance: TRAMADOL HYDROCHLORIDE
     Indication: Product used for unknown indication
     Dosage: STRENGTH: 100 MG
  18. ALFUZOSIN [Suspect]
     Active Substance: ALFUZOSIN
     Indication: Product used for unknown indication
     Dosage: STRENGTH: 10 MG, 10 MG QD

REACTIONS (12)
  - Drug dispensed to wrong patient [Unknown]
  - Product storage error [Unknown]
  - Product administration error [Unknown]
  - Lower respiratory tract infection [Unknown]
  - Malaise [Unknown]
  - Therapeutic response delayed [Unknown]
  - Antimicrobial susceptibility test resistant [Unknown]
  - Drug ineffective for unapproved indication [Unknown]
  - Wrong patient received product [Unknown]
  - Expired product administered [Unknown]
  - Minimum inhibitory concentration [Unknown]
  - Intentional product misuse [Unknown]
